FAERS Safety Report 9402600 (Version 1)
Quarter: 2013Q3

REPORT INFORMATION
  Report Type: Spontaneous
  Country: US (occurrence: US)
  Receive Date: 20130716
  Receipt Date: 20130716
  Transmission Date: 20140515
  Serious: Yes (Hospitalization)
  Sender: FDA-Public Use
  Company Number: US-SANOFI-AVENTIS-2013SA070569

PATIENT
  Age: 61 Year
  Sex: Male

DRUGS (3)
  1. MULTAQ [Suspect]
     Indication: ATRIAL FIBRILLATION
     Dosage: SPLITTING IT IN HALF AND TAKING IT HALF IN THE MORNING AND EVENING
     Route: 048
  2. ALL OTHER THERAPEUTIC PRODUCTS [Concomitant]
  3. ELIQUIS [Concomitant]

REACTIONS (5)
  - Atrial fibrillation [Unknown]
  - Muscle spasms [Unknown]
  - Pain in extremity [Unknown]
  - Insomnia [Unknown]
  - Wrong technique in drug usage process [Unknown]
